FAERS Safety Report 9047258 (Version 1)
Quarter: 2013Q1

REPORT INFORMATION
  Report Type: Report from Study
  Country: US (occurrence: US)
  Receive Date: 20130131
  Receipt Date: 20130131
  Transmission Date: 20140127
  Serious: No
  Sender: FDA-Public Use
  Company Number: US-ABBOTT-12P-163-0935787-00

PATIENT
  Age: 58 Year
  Sex: Female

DRUGS (30)
  1. HUMIRA 40 MG/0.8 ML PEN [Suspect]
     Indication: CROHN^S DISEASE
     Dosage: ONE DOSE
     Route: 058
     Dates: start: 20120510, end: 20120510
  2. HUMIRA 40 MG/0.8 ML PEN [Suspect]
     Route: 058
     Dates: start: 20120802
  3. ALPRAZOLAM [Concomitant]
     Indication: PAIN
  4. ALPRAZOLAM [Concomitant]
     Indication: STRESS
  5. AMITRIPTYLINE [Concomitant]
     Indication: PAIN
     Dosage: 25MG, AT BEDTIME
  6. AMITRIPTYLINE [Concomitant]
     Indication: STRESS
  7. LEXAPRO [Concomitant]
     Indication: PAIN
     Dosage: 20MG DAILY
  8. LEXAPRO [Concomitant]
     Indication: STRESS
  9. ALTACE [Concomitant]
     Indication: PRODUCT USED FOR UNKNOWN INDICATION
     Dosage: 5MG DAILY
  10. ASACOL [Concomitant]
     Indication: PRODUCT USED FOR UNKNOWN INDICATION
  11. NEURONTIN [Concomitant]
     Indication: PAIN
     Dosage: 50MG FOUR TIMES DAILY AS NEEDED
  12. FLEXERIL [Concomitant]
     Indication: PRODUCT USED FOR UNKNOWN INDICATION
  13. BENTYL [Concomitant]
     Indication: PRODUCT USED FOR UNKNOWN INDICATION
  14. FENTANYL [Concomitant]
     Indication: PRODUCT USED FOR UNKNOWN INDICATION
     Dosage: 75MCG, CHANGE EVERY OTHER DAY
  15. ANUCORT/HC [Concomitant]
     Indication: CONSTIPATION
  16. VITAMIN D [Concomitant]
     Indication: PRODUCT USED FOR UNKNOWN INDICATION
     Dosage: 50,000IU ONCE EVERY 3 MONTHS
  17. SIMVASTATIN [Concomitant]
     Indication: PRODUCT USED FOR UNKNOWN INDICATION
     Dosage: 40MG DAILY
  18. NASONEX [Concomitant]
     Indication: ASTHMA
     Dosage: 2SPRAYS EACH NOSTRIL DAILY
  19. NASONEX [Concomitant]
     Indication: HYPERSENSITIVITY
  20. FLOVENT [Concomitant]
     Indication: PRODUCT USED FOR UNKNOWN INDICATION
     Dosage: 100MCG = 1 PUFF TWICE DAILY
  21. SINGULAR [Concomitant]
     Indication: PRODUCT USED FOR UNKNOWN INDICATION
     Dosage: 10MG DAILY
  22. XOPENEX [Concomitant]
     Indication: RESPIRATORY THERAPY
  23. UNKNOWN INHALER [Concomitant]
     Indication: PRODUCT USED FOR UNKNOWN INDICATION
  24. PREDNISONE [Concomitant]
     Indication: ASTHMA
  25. PREDNISONE [Concomitant]
     Indication: CROHN^S DISEASE
  26. VITAMIN B 12 [Concomitant]
     Indication: PRODUCT USED FOR UNKNOWN INDICATION
     Dosage: 1000MCG WEEKLY
  27. NORVASC [Concomitant]
     Indication: PRODUCT USED FOR UNKNOWN INDICATION
     Dosage: 5MG DAILY
  28. NORCO [Concomitant]
     Indication: PRODUCT USED FOR UNKNOWN INDICATION
     Dosage: 5/325MG 2 TIMES DAILY
  29. HUMALOG [Concomitant]
     Indication: PRODUCT USED FOR UNKNOWN INDICATION
     Dosage: 6 UNITS WITH MEALS, PLUS SLIDING SCALE
  30. LANTUS [Concomitant]
     Indication: PRODUCT USED FOR UNKNOWN INDICATION
     Dosage: 16 UNITS AT NIGHT

REACTIONS (28)
  - Nasal congestion [Not Recovered/Not Resolved]
  - Injection site pain [Not Recovered/Not Resolved]
  - Injection site haemorrhage [Unknown]
  - Nasopharyngitis [Recovered/Resolved]
  - Cough [Not Recovered/Not Resolved]
  - Vomiting [Not Recovered/Not Resolved]
  - Pyrexia [Unknown]
  - Night sweats [Unknown]
  - Pain [Unknown]
  - Asthma [Unknown]
  - Increased upper airway secretion [Not Recovered/Not Resolved]
  - Pollakiuria [Unknown]
  - Asthma [Unknown]
  - Crohn^s disease [Unknown]
  - Abdominal pain upper [Unknown]
  - Diarrhoea [Unknown]
  - Aphagia [Unknown]
  - Fluid intake reduced [Unknown]
  - Incorrect dose administered [Unknown]
  - Abdominal pain lower [Unknown]
  - Diverticulitis [Unknown]
  - Frequent bowel movements [Not Recovered/Not Resolved]
  - Abdominal pain [Not Recovered/Not Resolved]
  - Asthma [Unknown]
  - Nasopharyngitis [Unknown]
  - Drug withdrawal syndrome [Unknown]
  - Feeling jittery [Unknown]
  - Feeling abnormal [Unknown]
